FAERS Safety Report 9184489 (Version 1)
Quarter: 2013Q1

REPORT INFORMATION
  Report Type: Report from Study
  Country: US (occurrence: US)
  Receive Date: 20130322
  Receipt Date: 20130322
  Transmission Date: 20140127
  Serious: No
  Sender: FDA-Public Use
  Company Number: US-VERTEX PHARMACEUTICALS INC.-2013-003924

PATIENT
  Age: 47 Year
  Sex: Female

DRUGS (3)
  1. VX-950 (TELAPREVIR) [Suspect]
     Indication: HEPATITIS C
     Dosage: 750 MG, TID
     Route: 048
     Dates: start: 20130316
  2. RIBASPHERE [Suspect]
     Indication: HEPATITIS C
     Dosage: 400 MG IN AM; 600 MG IN PM
     Route: 048
     Dates: start: 20130316
  3. PEGASYS [Suspect]
     Indication: HEPATITIS C
     Dosage: 180 ?G,QW
     Route: 058
     Dates: start: 20130316

REACTIONS (5)
  - Dry skin [Unknown]
  - Swelling face [Unknown]
  - Rectal haemorrhage [Unknown]
  - Diarrhoea [Unknown]
  - Anorectal discomfort [Unknown]
